FAERS Safety Report 5554131-3 (Version None)
Quarter: 2007Q4

REPORT INFORMATION
  Report Type: 
  Country: None (occurrence: None)
  Receive Date: 20071213
  Receipt Date: 20071120
  Transmission Date: 20080405
  Serious: Yes (Hospitalization)
  Sender: FDA-Public Use
  Company Number: US-BAYER-US-2007-043636

PATIENT
  Age: 69 Year
  Sex: Female

DRUGS (1)
  1. BETASERON [Suspect]
     Indication: MULTIPLE SCLEROSIS
     Dosage: TOTAL DAILY DOSE: 4 MIU
     Route: 058
     Dates: start: 20070608

REACTIONS (3)
  - MYOCARDIAL INFARCTION [None]
  - STRESS [None]
  - WRONG TECHNIQUE IN DRUG USAGE PROCESS [None]
